FAERS Safety Report 14799059 (Version 1)
Quarter: 2018Q2

REPORT INFORMATION
  Report Type: Report from Study
  Country: DE (occurrence: DE)
  Receive Date: 20180424
  Receipt Date: 20180424
  Transmission Date: 20180711
  Serious: Yes (Other)
  Sender: FDA-Public Use
  Company Number: DE-ROCHE-2110674

PATIENT
  Sex: Female

DRUGS (1)
  1. BEVACIZUMAB. [Suspect]
     Active Substance: BEVACIZUMAB
     Indication: BREAST CANCER
     Dosage: SUBSEQUENT DOSE ON 18/AUG/2010
     Route: 065
     Dates: start: 20100803, end: 20101201

REACTIONS (1)
  - Cardiac failure [Unknown]
